FAERS Safety Report 8559539-X (Version None)
Quarter: 2012Q3

REPORT INFORMATION
  Report Type: 
  Country: None (occurrence: None)
  Receive Date: 20120802
  Receipt Date: 20120723
  Transmission Date: 20120928
  Serious: Yes (Hospitalization)
  Sender: FDA-Public Use
  Company Number: US-BAYER-2012-019830

PATIENT
  Age: 35 Year
  Sex: Female
  Weight: 80 kg

DRUGS (12)
  1. TOPAMAX [Concomitant]
  2. YASMIN [Suspect]
     Indication: CONTRACEPTION
     Dosage: UNK
     Dates: start: 20060101, end: 20090101
  3. WELLBUTRIN XL [Concomitant]
  4. METAMUCIL-2 [Concomitant]
  5. ROPINIROLE [Concomitant]
     Dosage: UNK U, UNK
  6. CYMBALTA [Concomitant]
  7. FOLIC ACID [Concomitant]
     Indication: ANAEMIA
  8. KLONOPIN [Concomitant]
  9. TRAZODONE HYDROCHLORIDE [Concomitant]
  10. FERROUS SULFATE TAB [Concomitant]
     Indication: ANAEMIA
  11. YAZ [Suspect]
     Indication: CONTRACEPTION
     Dosage: UNK
     Dates: start: 20060101, end: 20090101
  12. ZYPREXA [Concomitant]

REACTIONS (3)
  - INJURY [None]
  - PAIN [None]
  - PULMONARY EMBOLISM [None]
